FAERS Safety Report 9255548 (Version 1)
Quarter: 2013Q1

REPORT INFORMATION
  Report Type: Spontaneous
  Country: US (occurrence: None)
  Receive Date: 20121212
  Receipt Date: 20121212
  Transmission Date: 20140127
  Serious: No
  Sender: FDA-Public Use
  Company Number: 1208USA008272

PATIENT
  Age: 61 Year
  Sex: Female

DRUGS (3)
  1. PEGINTRON(PEGINTERFERON ALFA-2B) POWDER FOR INJECTION [Suspect]
     Indication: HEPATITIS C
     Dates: start: 20120404
  2. REBETOL (RIBAVIRIN) CAPSULE [Suspect]
     Indication: HEPATITIS C
     Dates: start: 20120404
  3. VICTRELIS (BOCEPREVIR) CAPSULE [Suspect]
     Indication: HEPATITIS C
     Dates: start: 20120205

REACTIONS (1)
  - Drug ineffective [None]
